FAERS Safety Report 11750702 (Version 1)
Quarter: 2015Q4

REPORT INFORMATION
  Report Type: Spontaneous
  Country: DE (occurrence: DE)
  Receive Date: 20151118
  Receipt Date: 20151118
  Transmission Date: 20160304
  Serious: Yes (Other)
  Sender: FDA-Public Use
  Company Number: DE-EISAI MEDICAL RESEARCH-E2007-01226-SPO-DE

PATIENT
  Age: 52 Year
  Sex: Female
  Weight: 74 kg

DRUGS (3)
  1. FYCOMPA [Suspect]
     Active Substance: PERAMPANEL
     Indication: PARTIAL SEIZURES
     Route: 048
     Dates: start: 20130425, end: 2013
  2. FYCOMPA [Suspect]
     Active Substance: PERAMPANEL
     Route: 048
     Dates: start: 2013
  3. LEVETIRACETAM. [Concomitant]
     Active Substance: LEVETIRACETAM
     Indication: PARTIAL SEIZURES
     Route: 048
     Dates: start: 20060126

REACTIONS (3)
  - Aggression [Recovered/Resolved]
  - Irritability [Recovered/Resolved]
  - Depression [Recovered/Resolved]

NARRATIVE: CASE EVENT DATE: 20130525
